FAERS Safety Report 9459619 (Version 1)
Quarter: 2013Q3

REPORT INFORMATION
  Report Type: Spontaneous
  Country: US (occurrence: US)
  Receive Date: 20130815
  Receipt Date: 20130815
  Transmission Date: 20140515
  Serious: No
  Sender: FDA-Public Use
  Company Number: US-COVIDIEN/TYCO HEALTHCARE/MALLINCKRODT-T201303879

PATIENT
  Sex: Female
  Weight: 54.42 kg

DRUGS (4)
  1. FENTANYL TRANSDERMAL SYSTEM [Suspect]
     Indication: ARTHRITIS
     Dosage: 50 UG/HR Q 72 HRS
     Route: 062
     Dates: start: 2009, end: 2009
  2. FENTANYL TRANSDERMAL SYSTEM [Suspect]
     Dosage: 25 UG/HR Q 72 HOURS
     Route: 062
     Dates: start: 2009
  3. PREDNISONE [Concomitant]
     Indication: PRODUCT USED FOR UNKNOWN INDICATION
     Dosage: 1 MG, TID
     Route: 048
  4. FELODIPINE [Concomitant]
     Indication: BLOOD PRESSURE
     Dosage: 10 MG, QD
     Route: 048

REACTIONS (4)
  - Hot flush [Not Recovered/Not Resolved]
  - Application site bruise [Recovered/Resolved]
  - Drug administered at inappropriate site [Not Recovered/Not Resolved]
  - Product adhesion issue [Not Recovered/Not Resolved]
